FAERS Safety Report 13789240 (Version 2)
Quarter: 2017Q3

REPORT INFORMATION
  Report Type: Spontaneous
  Country: CA (occurrence: CA)
  Receive Date: 20170725
  Receipt Date: 20170816
  Transmission Date: 20171127
  Serious: Yes (Other)
  Sender: FDA-Public Use
  Company Number: CA-BAYER-2017-137640

PATIENT
  Age: 60 Year
  Sex: Female

DRUGS (1)
  1. SORAFENIB (RAF KINASE INHIBITOR) [Suspect]
     Active Substance: SORAFENIB
     Indication: CARCINOMA EX-PLEOMORPHIC ADENOMA

REACTIONS (3)
  - Toxicity to various agents [None]
  - Off label use [None]
  - Product use in unapproved indication [None]
